FAERS Safety Report 6795419-8 (Version None)
Quarter: 2010Q2

REPORT INFORMATION
  Report Type: 
  Country: None (occurrence: None)
  Receive Date: 20100625
  Receipt Date: 20100617
  Transmission Date: 20101027
  Serious: Yes (Hospitalization, Other)
  Sender: FDA-Public Use
  Company Number: BR-ABBOTT-10P-020-0652590-00

PATIENT
  Sex: Male
  Weight: 105 kg

DRUGS (7)
  1. HUMIRA [Suspect]
     Indication: CROHN'S DISEASE
     Route: 058
     Dates: start: 20090101
  2. ENTOCORT EC [Concomitant]
     Indication: CROHN'S DISEASE
     Route: 048
     Dates: start: 19950101, end: 20100501
  3. CALCORT [Concomitant]
     Indication: CROHN'S DISEASE
     Route: 048
     Dates: start: 20100501
  4. AZULFIN [Concomitant]
     Indication: CROHN'S DISEASE
     Route: 048
     Dates: start: 19950101, end: 20100501
  5. IMOSEC [Concomitant]
     Indication: CROHN'S DISEASE
     Route: 048
     Dates: start: 20100501
  6. OMEPRAZOLE [Concomitant]
     Indication: GASTRIC DISORDER
     Route: 048
     Dates: start: 19950101
  7. OMEPRAZOLE [Concomitant]
     Indication: PROPHYLAXIS

REACTIONS (5)
  - BLOOD POTASSIUM DECREASED [None]
  - CROHN'S DISEASE [None]
  - HAEMOGLOBIN DECREASED [None]
  - HYPERTENSION [None]
  - INFLUENZA [None]
